FAERS Safety Report 10360792 (Version 2)
Quarter: 2014Q4

REPORT INFORMATION
  Report Type: Spontaneous
  Country: US (occurrence: US)
  Receive Date: 20140804
  Receipt Date: 20141023
  Transmission Date: 20150528
  Serious: Yes (Disabling, Other)
  Sender: FDA-Public Use
  Company Number: US-GLAXOSMITHKLINE-A1083776A

PATIENT
  Sex: Male
  Weight: 70.3 kg

DRUGS (1)
  1. ADVAIR HFA [Suspect]
     Active Substance: FLUTICASONE PROPIONATE\SALMETEROL XINAFOATE
     Indication: PRODUCT USED FOR UNKNOWN INDICATION
     Dosage: 500/50 MCG. UNKNOWN DOSING.
     Route: 065

REACTIONS (7)
  - Oxygen supplementation [Unknown]
  - Disability [Unknown]
  - Chronic obstructive pulmonary disease [Unknown]
  - Haemoptysis [Unknown]
  - Lung neoplasm malignant [Unknown]
  - Dyspnoea [Unknown]
  - Pneumonectomy [Unknown]
